FAERS Safety Report 5504069-2 (Version None)
Quarter: 2007Q4

REPORT INFORMATION
  Report Type: 
  Country: None (occurrence: None)
  Receive Date: 20071101
  Receipt Date: 20071101
  Transmission Date: 20080405
  Serious: Yes (Hospitalization)
  Sender: FDA-Public Use
  Company Number: A0690897A

PATIENT
  Sex: Female

DRUGS (3)
  1. TUMS [Suspect]
  2. UNSPECIFIED MEDICATION [Concomitant]
  3. CALCIUM SUPPLEMENTS [Concomitant]

REACTIONS (6)
  - CEREBROVASCULAR ACCIDENT [None]
  - DIZZINESS [None]
  - HALLUCINATION [None]
  - MALAISE [None]
  - NONSPECIFIC REACTION [None]
  - OVERDOSE [None]
